FAERS Safety Report 7722755-0 (Version None)
Quarter: 2011Q3

REPORT INFORMATION
  Report Type: 
  Country: None (occurrence: None)
  Receive Date: 20110831
  Receipt Date: 20110818
  Transmission Date: 20111222
  Serious: Yes (Disabling)
  Sender: FDA-Public Use
  Company Number: GB-MYLANLABS-2011S1017230

PATIENT
  Age: 41 Year
  Sex: Female

DRUGS (8)
  1. LANSOPRAZOLE [Concomitant]
     Indication: PRODUCT USED FOR UNKNOWN INDICATION
     Dates: start: 20101213
  2. CLOMIPRAMINE HCL [Suspect]
  3. FERROUS FUMARATE [Concomitant]
     Indication: PRODUCT USED FOR UNKNOWN INDICATION
     Dates: start: 20101213
  4. CLOMIPRAMINE HCL [Suspect]
     Indication: HEPATO-LENTICULAR DEGENERATION
     Dates: start: 20110101
  5. PENICILLAMINE [Concomitant]
     Indication: PRODUCT USED FOR UNKNOWN INDICATION
     Dates: start: 20110207
  6. CLOMIPRAMINE HCL [Suspect]
  7. CLOMIPRAMINE HCL [Suspect]
     Dates: start: 20110401
  8. ACETAMINOPHEN [Concomitant]
     Indication: PRODUCT USED FOR UNKNOWN INDICATION
     Dates: start: 20101213

REACTIONS (11)
  - DIARRHOEA [None]
  - COORDINATION ABNORMAL [None]
  - HYPERHIDROSIS [None]
  - DYSKINESIA [None]
  - CONTUSION [None]
  - DRUG INEFFECTIVE [None]
  - MOBILITY DECREASED [None]
  - AGGRESSION [None]
  - MOOD ALTERED [None]
  - SLEEP DISORDER [None]
  - APHASIA [None]
